FAERS Safety Report 6266290-8 (Version None)
Quarter: 2009Q3

REPORT INFORMATION
  Report Type: 
  Country: None (occurrence: None)
  Receive Date: 20090713
  Receipt Date: 20090707
  Transmission Date: 20100115
  Serious: Yes (Death, Hospitalization, Other)
  Sender: FDA-Public Use
  Company Number: PHHY2009MX27340

PATIENT
  Age: 71 Year
  Sex: Female

DRUGS (2)
  1. DIOVAN HCT [Suspect]
     Indication: HYPERTENSION
     Dosage: 1 TABLETS/DAY
     Route: 048
     Dates: start: 20010101, end: 20090501
  2. DIOVAN HCT [Suspect]
     Dosage: 2 DF/DAY
     Route: 048
     Dates: end: 20090501

REACTIONS (4)
  - ANAEMIA [None]
  - GASTRIC ULCER [None]
  - HYPERGLYCAEMIA [None]
  - RESPIRATORY ARREST [None]
